FAERS Safety Report 4474700-1 (Version None)
Quarter: 2004Q4

REPORT INFORMATION
  Report Type: 
  Country: None (occurrence: None)
  Receive Date: 20041012
  Receipt Date: 20040930
  Transmission Date: 20050328
  Serious: Yes (Hospitalization)
  Sender: FDA-Public Use
  Company Number: 200410942BVD

PATIENT
  Age: 71 Year
  Sex: Male
  Weight: 77 kg

DRUGS (6)
  1. LEVITRA [Suspect]
     Indication: ERECTILE DYSFUNCTION
     Dates: start: 20040824
  2. ENALAPRIL MALEATE [Concomitant]
  3. GLIBENCLAMID [Concomitant]
  4. ASPIRIN [Concomitant]
  5. PRAVASIN [Concomitant]
  6. METOPROLOL [Concomitant]

REACTIONS (4)
  - CARDIAC FAILURE [None]
  - MUSCLE SPASTICITY [None]
  - ORTHOPNOEA [None]
  - PULMONARY CONGESTION [None]
